FAERS Safety Report 20959324 (Version 2)
Quarter: 2022Q2

REPORT INFORMATION
  Report Type: Spontaneous
  Country: US (occurrence: US)
  Receive Date: 20220614
  Receipt Date: 20220627
  Transmission Date: 20220721
  Serious: Yes (Hospitalization, Other)
  Sender: FDA-Public Use
  Company Number: US-UPSHER-SMITH LABORATORIES, LLC-2022USL00384

PATIENT
  Sex: Male
  Weight: 81.633 kg

DRUGS (18)
  1. CHLORPROMAZINE HYDROCHLORIDE [Suspect]
     Active Substance: CHLORPROMAZINE HYDROCHLORIDE
     Indication: Chemical poisoning
     Dosage: 25 MG AT 3:30 PM AND 50 MG AT 6:30 PM
     Route: 048
     Dates: end: 202205
  2. CHLORPROMAZINE HYDROCHLORIDE [Suspect]
     Active Substance: CHLORPROMAZINE HYDROCHLORIDE
     Dosage: 25 MG AT 3:30 PM AND 50 MG AT 6:30 PM
     Route: 048
     Dates: start: 202206
  3. CHLORPROMAZINE HYDROCHLORIDE [Suspect]
     Active Substance: CHLORPROMAZINE HYDROCHLORIDE
     Dosage: 12.5 MG AT 3:30 PM AND 37.5 MG AT 6:30 PM (ALONG WITH 12.5 MG AT 3:30 PM AND 6:30 PM OF LANNET PRODU
     Dates: start: 202206, end: 202206
  4. CHLORPROMAZINE HYDROCHLORIDE [Suspect]
     Active Substance: CHLORPROMAZINE HYDROCHLORIDE
     Dosage: 25 MG AT 3:30 PM AND 50 MG AT 6:30 PM
     Route: 048
     Dates: start: 202206
  5. PRILOSEC [Concomitant]
     Active Substance: OMEPRAZOLE MAGNESIUM
     Dosage: 80 MG, 1X/DAY
  6. KEPPRA [Concomitant]
     Active Substance: LEVETIRACETAM
     Dosage: 2000 MG, 1X/DAY
  7. METFORMIN [Concomitant]
     Active Substance: METFORMIN HYDROCHLORIDE
     Dosage: 5 MG, 2X/DAY
  8. SENNA [Concomitant]
     Active Substance: SENNA LEAF\SENNOSIDES\SENNOSIDES A AND B
  9. MORPHINE; UNSPECIFIED STRENGTH #1 [Concomitant]
     Dosage: A HALF OF USL TABLET AND HALF OF LANNETT TABLET AT 3:30 PM, 1.5 USL TABLET AND A HALF OF THE LANNET
  10. BUSPAR [Concomitant]
     Active Substance: BUSPIRONE HYDROCHLORIDE
     Dosage: 60 MG, 1X/DAY
  11. CYMBALTA [Concomitant]
     Active Substance: DULOXETINE HYDROCHLORIDE
     Dosage: 100 MG, 1X/DAY
  12. LASIX [Concomitant]
     Active Substance: FUROSEMIDE
  13. BACTRIM DS [Concomitant]
     Active Substance: SULFAMETHOXAZOLE\TRIMETHOPRIM
     Dosage: 800 MG/160 MG ONCE A DAY
  14. LISINOPRIL [Concomitant]
     Active Substance: LISINOPRIL
     Dosage: 10 MG, 1X/DAY
  15. TYLENOL WITH CODEINE [Concomitant]
     Active Substance: ACETAMINOPHEN\CODEINE PHOSPHATE
     Dosage: 4 DOSING UNITS PER DAY
  16. MORPHINE [Concomitant]
     Active Substance: MORPHINE
     Dosage: 60 MG PER DAY
  17. MORPHINE [Concomitant]
     Active Substance: MORPHINE
     Dosage: 60 MG PER DAY
  18. PROMETHAZINE [Concomitant]
     Active Substance: PROMETHAZINE HYDROCHLORIDE
     Dosage: 25 MG, 3X/DAY

REACTIONS (14)
  - Myocardial infarction [Recovered/Resolved]
  - Stress cardiomyopathy [Recovered/Resolved]
  - COVID-19 [Recovered/Resolved]
  - Post-acute COVID-19 syndrome [Not Recovered/Not Resolved]
  - Emphysema [Unknown]
  - Tardive dyskinesia [Unknown]
  - Gait disturbance [Not Recovered/Not Resolved]
  - Memory impairment [Not Recovered/Not Resolved]
  - Dysarthria [Unknown]
  - Diabetic foot [Not Recovered/Not Resolved]
  - Medication error [Recovered/Resolved]
  - Stupor [Not Recovered/Not Resolved]
  - Drug effect faster than expected [Not Recovered/Not Resolved]
  - Heart rate decreased [Not Recovered/Not Resolved]

NARRATIVE: CASE EVENT DATE: 20010101
